FAERS Safety Report 21396238 (Version 2)
Quarter: 2022Q4

REPORT INFORMATION
  Report Type: Report from Study
  Country: US (occurrence: US)
  Receive Date: 20220930
  Receipt Date: 20221015
  Transmission Date: 20230113
  Serious: Yes (Death, Other)
  Sender: FDA-Public Use
  Company Number: US-ABBVIE-4133762

PATIENT
  Sex: Female
  Weight: 56.699 kg

DRUGS (22)
  1. CARBIDOPA\LEVODOPA [Suspect]
     Active Substance: CARBIDOPA\LEVODOPA
     Indication: Parkinson^s disease
     Route: 050
     Dates: start: 20200728
  2. CARBIDOPA\LEVODOPA [Suspect]
     Active Substance: CARBIDOPA\LEVODOPA
  3. TRAVATAN Z [Concomitant]
     Active Substance: TRAVOPROST
     Indication: Product used for unknown indication
  4. OCUVITE [Concomitant]
     Active Substance: VITAMINS
     Indication: Product used for unknown indication
  5. ARIPIPRAZOLE [Concomitant]
     Active Substance: ARIPIPRAZOLE
     Indication: Product used for unknown indication
  6. ALEVE [Concomitant]
     Active Substance: NAPROXEN SODIUM
     Indication: Product used for unknown indication
  7. PROBIOTICS NOS [Concomitant]
     Active Substance: PROBIOTICS NOS
     Indication: Product used for unknown indication
  8. QUETIAPINE FUMARATE [Concomitant]
     Active Substance: QUETIAPINE FUMARATE
     Indication: Product used for unknown indication
  9. LEVOTHYROXINE [Concomitant]
     Active Substance: LEVOTHYROXINE
     Indication: Product used for unknown indication
  10. METHOCARBAMOL [Concomitant]
     Active Substance: METHOCARBAMOL
     Indication: Product used for unknown indication
  11. MIRTAZAPINE [Concomitant]
     Active Substance: MIRTAZAPINE
     Indication: Product used for unknown indication
  12. BETOPTIC [Concomitant]
     Active Substance: BETAXOLOL HYDROCHLORIDE
     Indication: Product used for unknown indication
  13. NORTHERA [Concomitant]
     Active Substance: DROXIDOPA
     Indication: Product used for unknown indication
  14. LORAZEPAM [Concomitant]
     Active Substance: LORAZEPAM
     Indication: Product used for unknown indication
  15. CARBIDOPA\LEVODOPA [Concomitant]
     Active Substance: CARBIDOPA\LEVODOPA
     Indication: Product used for unknown indication
     Dosage: ER
  16. COVID-19 VACCINE NOS [Suspect]
     Active Substance: COVID-19 VACCINE NOS
     Indication: COVID-19 immunisation
     Route: 030
     Dates: start: 202203, end: 202203
  17. COVID-19 VACCINE NOS [Suspect]
     Active Substance: COVID-19 VACCINE NOS
     Indication: COVID-19 immunisation
     Route: 030
     Dates: start: 202103, end: 202103
  18. COVID-19 VACCINE NOS [Suspect]
     Active Substance: COVID-19 VACCINE NOS
     Indication: COVID-19 immunisation
     Route: 030
     Dates: start: 202111, end: 202111
  19. COVID-19 VACCINE NOS [Suspect]
     Active Substance: COVID-19 VACCINE NOS
     Indication: COVID-19 immunisation
     Route: 030
     Dates: start: 202102, end: 202102
  20. THC CBD PATCH [Concomitant]
     Indication: Product used for unknown indication
  21. CARBIDOPA [Concomitant]
     Active Substance: CARBIDOPA
     Indication: Product used for unknown indication
  22. CALTRATE [Concomitant]
     Active Substance: CALCIUM CARBONATE
     Indication: Product used for unknown indication

REACTIONS (36)
  - Parkinson^s disease [Fatal]
  - Paranoia [Not Recovered/Not Resolved]
  - Hip fracture [Recovered/Resolved]
  - Hypersomnia [Not Recovered/Not Resolved]
  - Gait inability [Not Recovered/Not Resolved]
  - Anxiety [Not Recovered/Not Resolved]
  - Dehydration [Not Recovered/Not Resolved]
  - Depression [Not Recovered/Not Resolved]
  - Vertigo [Not Recovered/Not Resolved]
  - Disorientation [Recovered/Resolved]
  - On and off phenomenon [Not Recovered/Not Resolved]
  - Hypotension [Not Recovered/Not Resolved]
  - Apathy [Not Recovered/Not Resolved]
  - Mobility decreased [Recovered/Resolved]
  - Mood swings [Not Recovered/Not Resolved]
  - Mobility decreased [Not Recovered/Not Resolved]
  - Dizziness [Not Recovered/Not Resolved]
  - Feeling abnormal [Not Recovered/Not Resolved]
  - Fatigue [Not Recovered/Not Resolved]
  - Cognitive disorder [Not Recovered/Not Resolved]
  - Musculoskeletal stiffness [Not Recovered/Not Resolved]
  - Confusional state [Not Recovered/Not Resolved]
  - Akinesia [Not Recovered/Not Resolved]
  - Somnolence [Recovered/Resolved]
  - Freezing phenomenon [Not Recovered/Not Resolved]
  - Fall [Recovered/Resolved]
  - Urinary tract infection [Not Recovered/Not Resolved]
  - Asthenia [Not Recovered/Not Resolved]
  - Fall [Recovered/Resolved]
  - Disorientation [Unknown]
  - Freezing phenomenon [Not Recovered/Not Resolved]
  - Delusion [Not Recovered/Not Resolved]
  - Urinary tract infection [Recovered/Resolved]
  - Mental impairment [Not Recovered/Not Resolved]
  - Speech disorder [Unknown]
  - Dementia [Not Recovered/Not Resolved]

NARRATIVE: CASE EVENT DATE: 20210101
